FAERS Safety Report 5301835-3 (Version None)
Quarter: 2007Q2

REPORT INFORMATION
  Report Type: 
  Country: None (occurrence: None)
  Receive Date: 20070416
  Receipt Date: 20070416
  Transmission Date: 20071010
  Serious: Yes (Other)
  Sender: FDA-Public Use
  Company Number: None

PATIENT
  Age: 33 Year
  Sex: Female
  Weight: 64.8644 kg

DRUGS (1)
  1. KANKA MOUTH PAIN LIQUID BENZOCAINE 20% BLISTEX [Suspect]
     Indication: ORAL PAIN
     Dosage: AS NEEDED UP TO 4 TIME/DAY OTHER
     Dates: start: 20070411, end: 20070411

REACTIONS (8)
  - CONFUSIONAL STATE [None]
  - DYSURIA [None]
  - FATIGUE [None]
  - FEELING HOT AND COLD [None]
  - LETHARGY [None]
  - NASAL DISCOMFORT [None]
  - PAIN [None]
  - SWELLING FACE [None]
